FAERS Safety Report 8859447 (Version 2)
Quarter: 2013Q1

REPORT INFORMATION
  Report Type: Spontaneous
  Country: DK (occurrence: None)
  Receive Date: 20121023
  Receipt Date: 20121109
  Transmission Date: 20140127
  Serious: Yes (Other)
  Sender: FDA-Public Use
  Company Number: 2012MA012590

PATIENT
  Age: 78 Year
  Sex: Female

DRUGS (1)
  1. IRINOTECAN HYDROCHLORIDE [Suspect]
     Indication: COLORECTAL CANCER METASTATIC
     Route: 042
     Dates: start: 20120808

REACTIONS (5)
  - Dizziness [None]
  - Aphasia [None]
  - Speech disorder [None]
  - Confusional state [None]
  - Blood pressure increased [None]
